FAERS Safety Report 6462474-4 (Version None)
Quarter: 2009Q4

REPORT INFORMATION
  Report Type: 
  Country: None (occurrence: None)
  Receive Date: 20091130
  Receipt Date: 20091117
  Transmission Date: 20100525
  Serious: Yes (Other)
  Sender: FDA-Public Use
  Company Number: US-ELI_LILLY_AND_COMPANY-US200910003663

PATIENT
  Age: 58 Year
  Sex: Female

DRUGS (5)
  1. FORTEO [Suspect]
     Indication: OSTEOPOROSIS
     Dosage: UNK, UNK
     Dates: start: 20071101
  2. FORTEO [Suspect]
     Dosage: UNK, UNK
     Dates: start: 20090101, end: 20091001
  3. TRAMOL/00020001/ [Concomitant]
     Indication: PAIN
  4. CALCIUM W/VITAMIN D /00188401/ [Concomitant]
  5. TRAMADOL HCL [Concomitant]

REACTIONS (10)
  - FATIGUE [None]
  - HYPOAESTHESIA FACIAL [None]
  - HYPOAESTHESIA ORAL [None]
  - MUSCULAR WEAKNESS [None]
  - MYALGIA [None]
  - NECK PAIN [None]
  - OSTEONECROSIS [None]
  - PARATHYROID DISORDER [None]
  - RESORPTION BONE INCREASED [None]
  - TOOTH FRACTURE [None]
